FAERS Safety Report 21223386 (Version 1)
Quarter: 2022Q3

REPORT INFORMATION
  Report Type: Spontaneous
  Country: BR (occurrence: BR)
  Receive Date: 20220817
  Receipt Date: 20220817
  Transmission Date: 20221027
  Serious: Yes (Other)
  Sender: FDA-Public Use
  Company Number: BR-PFIZER INC-2020103805

PATIENT
  Age: 64 Year
  Sex: Male

DRUGS (2)
  1. SUTENT [Suspect]
     Active Substance: SUNITINIB MALATE
     Dosage: UNK, CYCLIC - TAKES FOR 14 DAYS AND PAUSES 7
     Dates: start: 20200129, end: 20200226
  2. SUTENT [Suspect]
     Active Substance: SUNITINIB MALATE
     Dosage: UNK, CYCLIC - TAKES FOR 28 DAYS AND PAUSES 14

REACTIONS (2)
  - Surgery [Unknown]
  - Pallor [Unknown]

NARRATIVE: CASE EVENT DATE: 20220601
